FAERS Safety Report 4592259-5 (Version None)
Quarter: 2005Q1

REPORT INFORMATION
  Report Type: 
  Country: None (occurrence: None)
  Receive Date: 20050228
  Receipt Date: 20041108
  Transmission Date: 20050727
  Serious: Yes (Hospitalization)
  Sender: FDA-Public Use
  Company Number: US-BRISTOL-MYERS SQUIBB COMPANY-12758942

PATIENT
  Age: 35 Year
  Sex: Male
  Weight: 91 kg

DRUGS (1)
  1. ABILIFY [Suspect]
     Indication: SCHIZOPHRENIA, PARANOID TYPE
     Route: 048
     Dates: start: 20040811, end: 20040905

REACTIONS (2)
  - AKATHISIA [None]
  - PSYCHOTIC DISORDER [None]
